FAERS Safety Report 20963736 (Version 2)
Quarter: 2022Q2

REPORT INFORMATION
  Report Type: Spontaneous
  Country: GB (occurrence: GB)
  Receive Date: 20220615
  Receipt Date: 20220628
  Transmission Date: 20220721
  Serious: Yes (Hospitalization, Other)
  Sender: FDA-Public Use
  Company Number: GB-MYLANLABS-2022M1044345

PATIENT
  Age: 25 Year
  Sex: Male
  Weight: 106.6 kg

DRUGS (5)
  1. CLOZARIL [Suspect]
     Active Substance: CLOZAPINE
     Indication: Schizophrenia
     Dosage: 100 MILLIGRAM, AM (100MG IN THE MORNIN G AND 200 MG AT NIGHT)
     Route: 048
     Dates: start: 20220519, end: 20220606
  2. CLOZARIL [Suspect]
     Active Substance: CLOZAPINE
     Dosage: 200 MILLIGRAM, PM (100MG IN THE MORNIN G AND 200 MG AT NIGHT)
     Route: 048
     Dates: start: 20220519, end: 20220606
  3. DEPAKOTE [Concomitant]
     Active Substance: DIVALPROEX SODIUM
     Indication: Affective disorder
     Dosage: 500 MILLIGRAM, AM (500MG IN THE MORNING AND 2GRAM AT NIGHT)
     Route: 048
  4. DEPAKOTE [Concomitant]
     Active Substance: DIVALPROEX SODIUM
     Dosage: 2 GRAM, PM (500MG IN THE MORNING AND 2GRAM AT NIGHT)
     Route: 048
  5. LITHIUM CARBONATE [Concomitant]
     Active Substance: LITHIUM CARBONATE
     Indication: Affective disorder
     Dosage: 1200 MILLIGRAM, PM, AT NIGHT
     Route: 048

REACTIONS (3)
  - Myocarditis [Recovered/Resolved]
  - White blood cell count increased [Recovered/Resolved]
  - Neutrophil count increased [Recovered/Resolved]

NARRATIVE: CASE EVENT DATE: 20220606
